FAERS Safety Report 16377841 (Version 1)
Quarter: 2019Q2

REPORT INFORMATION
  Report Type: Report from Study
  Country: None (occurrence: BR)
  Receive Date: 20190531
  Receipt Date: 20190531
  Transmission Date: 20190711
  Serious: Yes (Hospitalization, Other)
  Sender: FDA-Public Use
  Company Number: BR-ABBVIE-19K-020-2799947-00

PATIENT
  Sex: Male
  Weight: 70 kg

DRUGS (1)
  1. HUMIRA [Suspect]
     Active Substance: ADALIMUMAB
     Indication: CROHN^S DISEASE
     Route: 058
     Dates: start: 20161206

REACTIONS (16)
  - Colostomy closure [Recovered/Resolved]
  - Pulmonary oedema [Unknown]
  - Gastrointestinal disorder [Unknown]
  - Post procedural complication [Unknown]
  - Appendicectomy [Unknown]
  - Abnormal faeces [Unknown]
  - Colostomy closure [Recovered/Resolved]
  - Intestinal resection [Unknown]
  - Post procedural infection [Recovering/Resolving]
  - Diarrhoea [Unknown]
  - Intra-abdominal fluid collection [Unknown]
  - Emphysema [Unknown]
  - Bladder disorder [Unknown]
  - Intestinal perforation [Unknown]
  - Pain [Unknown]
  - Colostomy closure [Recovered/Resolved]

NARRATIVE: CASE EVENT DATE: 2016
